FAERS Safety Report 6298801-0 (Version None)
Quarter: 2009Q3

REPORT INFORMATION
  Report Type: 
  Country: None (occurrence: None)
  Receive Date: 20090806
  Receipt Date: 20070518
  Transmission Date: 20100115
  Serious: Yes (Other)
  Sender: FDA-Public Use
  Company Number: US-ASTRAZENECA-2006UW11880

PATIENT
  Age: 63 Year
  Sex: Male
  Weight: 70.3 kg

DRUGS (15)
  1. SEROQUEL [Suspect]
     Indication: BIPOLAR I DISORDER
     Route: 048
     Dates: start: 19990601, end: 20060701
  2. SEROQUEL [Suspect]
     Dosage: 25 MG TO 300 MG AT BEDTIME
     Route: 048
     Dates: start: 20010531, end: 20060523
  3. ZYPREXA [Concomitant]
  4. LITHIUM [Concomitant]
  5. FLOMAX [Concomitant]
     Route: 048
     Dates: start: 20010302
  6. LITHOBID [Concomitant]
     Dates: start: 20001023
  7. BAYCOL [Concomitant]
     Route: 048
     Dates: start: 20000311
  8. XANAX [Concomitant]
     Dosage: 0.25 MG TO 0.5 MG TWICE A DAY
     Route: 048
     Dates: start: 20000608
  9. DEPAKOTE [Concomitant]
     Dosage: 250 MG TO 500 MG TWICE A DAY
     Route: 048
     Dates: start: 20000420
  10. TOPROL-XL [Concomitant]
     Dosage: 50 MG TO 100 MG
     Route: 048
     Dates: start: 20020517
  11. PRAVACHOL [Concomitant]
     Dates: start: 20030205
  12. ZETIA [Concomitant]
     Route: 048
     Dates: start: 20030302
  13. ASPIRIN [Concomitant]
     Dosage: 81 MG TO 325 MG
     Route: 048
     Dates: start: 19860903
  14. GABITRIL [Concomitant]
     Dates: start: 20030205
  15. TRILEPTAL [Concomitant]
     Dosage: 300 MG TO 600 MG TWICE A DAY
     Route: 048
     Dates: start: 20020219

REACTIONS (5)
  - DIABETES MELLITUS [None]
  - DIABETES MELLITUS INADEQUATE CONTROL [None]
  - GLUCOSE TOLERANCE IMPAIRED [None]
  - HYPERTENSION [None]
  - NEUROPATHY PERIPHERAL [None]
